FAERS Safety Report 10240099 (Version 1)
Quarter: 2014Q2

REPORT INFORMATION
  Report Type: Spontaneous
  Country: SE (occurrence: SE)
  Receive Date: 20140617
  Receipt Date: 20140617
  Transmission Date: 20141212
  Serious: Yes (Other)
  Sender: FDA-Public Use
  Company Number: SE-UCBSA-2014000356

PATIENT
  Age: 63 Year
  Sex: Male

DRUGS (5)
  1. CIMZIA [Suspect]
     Dosage: 200 MG
     Route: 058
     Dates: start: 20140206, end: 20140211
  2. ALENDRONIC ACID [Concomitant]
     Dosage: 70 MG
  3. ENALAPRIL [Concomitant]
     Dosage: 5 MG
  4. FELODIPIN HEXAL [Concomitant]
     Dosage: 5 MG
  5. KALCIPOS-D [Concomitant]
     Dosage: 500 MG/400 IE

REACTIONS (1)
  - Hypersensitivity [Unknown]
